FAERS Safety Report 21650415 (Version 1)
Quarter: 2022Q4

REPORT INFORMATION
  Report Type: Spontaneous
  Country: US (occurrence: US)
  Receive Date: 20221128
  Receipt Date: 20221128
  Transmission Date: 20230113
  Serious: No
  Sender: FDA-Public Use
  Company Number: US-PFIZER INC-202201322856

PATIENT
  Age: 49 Year
  Sex: Female

DRUGS (4)
  1. XELJANZ XR [Suspect]
     Active Substance: TOFACITINIB CITRATE
     Dosage: 11 MG, 1X/DAY
     Route: 048
  2. BIOTIN [Concomitant]
     Active Substance: BIOTIN
     Dosage: UNK
  3. FLUAD QUAD [Concomitant]
     Dosage: UNK
  4. MODERNA COVID-19 VACCINE [Concomitant]
     Active Substance: ELASOMERAN
     Dosage: UNK

REACTIONS (1)
  - Condition aggravated [Recovered/Resolved]
